FAERS Safety Report 6252148-7 (Version None)
Quarter: 2009Q2

REPORT INFORMATION
  Report Type: 
  Country: None (occurrence: None)
  Receive Date: 20090630
  Receipt Date: 20050714
  Transmission Date: 20091009
  Serious: Yes (Hospitalization)
  Sender: FDA-Public Use
  Company Number: US-ROCHE-639341

PATIENT
  Sex: Female

DRUGS (15)
  1. ENFUVIRTIDE [Suspect]
     Route: 065
     Dates: start: 20040510, end: 20040801
  2. ENFUVIRTIDE [Suspect]
     Route: 065
     Dates: start: 20040927, end: 20050101
  3. ENFUVIRTIDE [Suspect]
     Route: 065
     Dates: start: 20050916, end: 20060511
  4. EPIVIR [Concomitant]
     Dates: start: 20040510, end: 20040801
  5. INVIRASE [Concomitant]
     Dates: start: 20040510, end: 20040801
  6. INVIRASE [Concomitant]
     Dates: start: 20040927, end: 20060511
  7. LEXIVA [Concomitant]
     Dosage: DOSE: 1 TAB.
     Dates: start: 20040510, end: 20040801
  8. LEXIVA [Concomitant]
     Dosage: DOSE : 1 TAB.
     Dates: start: 20040927, end: 20060511
  9. VIDEX EC [Concomitant]
     Dates: start: 20040510, end: 20040801
  10. VIDEX EC [Concomitant]
     Dates: start: 20040927, end: 20060511
  11. NORVIR [Concomitant]
     Dates: start: 20040510, end: 20040801
  12. NORVIR [Concomitant]
     Dates: start: 20040510, end: 20040801
  13. NORVIR [Concomitant]
     Dates: start: 20040927, end: 20060511
  14. MEPRON [Concomitant]
     Dates: start: 20050224, end: 20050228
  15. MYCELEX [Concomitant]
     Dosage: TDD: 1 TAB.
     Dates: start: 20050717, end: 20050730

REACTIONS (4)
  - DIABETIC NEPHROPATHY [None]
  - HIV INFECTION [None]
  - RENAL FAILURE ACUTE [None]
  - RENAL FAILURE CHRONIC [None]
